FAERS Safety Report 12786793 (Version 2)
Quarter: 2016Q4

REPORT INFORMATION
  Report Type: Spontaneous
  Country: BE (occurrence: BE)
  Receive Date: 20160927
  Receipt Date: 20161014
  Transmission Date: 20170207
  Serious: Yes (Death, Life-Threatening, Hospitalization)
  Sender: FDA-Public Use
  Company Number: BE-B.I. PHARMACEUTICALS,INC./RIDGEFIELD-2016-BI-62928BL

PATIENT
  Age: 56 Year
  Sex: Male
  Weight: 69 kg

DRUGS (7)
  1. GILOTRIF [Suspect]
     Active Substance: AFATINIB
     Indication: NON-SMALL CELL LUNG CANCER STAGE IV
     Route: 048
     Dates: start: 20160826, end: 20160917
  2. BISOPROLOL [Concomitant]
     Active Substance: BISOPROLOL
     Indication: HYPERTENSION
     Dosage: DAILY DOSE: 5
     Route: 048
  3. PANTOPRAZOLE [Concomitant]
     Active Substance: PANTOPRAZOLE SODIUM
     Indication: GASTROOESOPHAGEAL REFLUX DISEASE
     Dosage: DAILY DOSE: 40
     Route: 048
  4. CARDIOASPIRINE [Concomitant]
     Active Substance: ASPIRIN
     Indication: ISCHAEMIC CARDIOMYOPATHY
     Dosage: DAILY DOSE: 100
     Route: 048
  5. VIBRAMYCINE [Concomitant]
     Indication: ACNE
     Dosage: DAILY DOSE: 100
     Route: 048
  6. OXYCODONE [Concomitant]
     Active Substance: OXYCODONE
     Indication: PRODUCT USED FOR UNKNOWN INDICATION
     Dosage: DAILY DOSE: 20
     Route: 048
  7. GILOTRIF [Suspect]
     Active Substance: AFATINIB
     Indication: EGFR GENE MUTATION

REACTIONS (2)
  - Malignant neoplasm progression [Fatal]
  - Aortic aneurysm [Recovered/Resolved]

NARRATIVE: CASE EVENT DATE: 20160105
